FAERS Safety Report 8299237-3 (Version None)
Quarter: 2012Q2

REPORT INFORMATION
  Report Type: 
  Country: None (occurrence: None)
  Receive Date: 20120419
  Receipt Date: 20120417
  Transmission Date: 20120825
  Serious: No
  Sender: FDA-Public Use
  Company Number: US-PFIZER INC-2012095417

PATIENT
  Sex: Female
  Weight: 59 kg

DRUGS (1)
  1. RAPAMUNE [Suspect]
     Indication: LIVER TRANSPLANT
     Dosage: 1 MG, TWO TIMES A DAY AND THREE TIMES A DAY ALTERNATELY
     Route: 048
     Dates: start: 20090301

REACTIONS (1)
  - DRUG LEVEL INCREASED [None]
